FAERS Safety Report 10388799 (Version 1)
Quarter: 2014Q1

REPORT INFORMATION
  Report Type: Spontaneous
  Country: US (occurrence: None)
  Receive Date: 20140306
  Receipt Date: 20140306
  Transmission Date: 20141002
  Serious: Yes (Hospitalization, Other)
  Sender: FDA-Public Use
  Company Number: 163-21880-13064513

PATIENT
  Age: 87 Year
  Sex: Female
  Weight: 59.88 kg

DRUGS (7)
  1. REVLIMID (LENALIDOMIDE) (10 MG CAPSULES) [Suspect]
     Indication: PLASMA CELL MYELOMA
     Dosage: 21 IN 28 D, PO
     Route: 048
     Dates: start: 201108, end: 201208
  2. COUMADIN(WARFARIN SODIUM)(UNKNOWN)? [Concomitant]
  3. DECADRON(DEXAMETHASONE)(UNKNOWN)? [Concomitant]
  4. VELCADE(BORTEZOMIB)(UNKNOWN) [Concomitant]
  5. PROCRIT(ERYTHROPOIETIN)(UNKNOWN) [Concomitant]
  6. LEVOTHYROXINE(LEVOTHYROXINE)(UNKNOWN) [Concomitant]
  7. POTASSIUM(POTASSIUM)(UNKNOWN) [Concomitant]

REACTIONS (4)
  - Deep vein thrombosis [None]
  - Pneumonia [None]
  - Anaemia [None]
  - Fatigue [None]
